FAERS Safety Report 7762277-4 (Version None)
Quarter: 2011Q3

REPORT INFORMATION
  Report Type: 
  Country: None (occurrence: None)
  Receive Date: 20110920
  Receipt Date: 20110913
  Transmission Date: 20111222
  Serious: Yes (Hospitalization)
  Sender: FDA-Public Use
  Company Number: CH-ROCHE-783207

PATIENT
  Age: 74 Year
  Sex: Male

DRUGS (8)
  1. CISPLATIN [Suspect]
     Indication: LUNG ADENOCARCINOMA METASTATIC
     Dosage: LAST DOSE PRIOR TO SAE: 31 MAY 2011 DOSING PER PROTOCOL
     Route: 042
     Dates: start: 20110331
  2. RISPERIDONE [Concomitant]
     Route: 048
  3. METFORMIN HCL [Concomitant]
     Route: 048
  4. ASPIRIN [Concomitant]
     Dosage: DRUG NAME: ASS CARDIO
     Route: 048
  5. DIAMICRON [Concomitant]
     Dosage: TDD: 30MR
     Route: 048
  6. BEVACIZUMAB [Suspect]
     Indication: LUNG ADENOCARCINOMA METASTATIC
     Dosage: LAST DOSE PRIOR TO SAE: 31 MAY 2011 DOSING PER PROTOCOL
     Route: 042
     Dates: start: 20110331
  7. PEMETREXED [Suspect]
     Indication: LUNG ADENOCARCINOMA METASTATIC
     Dosage: LAST DOSE PRIOR TO SAE: 31 MAY 2011 DOSING PER PROTOCOL
     Route: 042
     Dates: start: 20110331
  8. ESCITALOPRAM [Concomitant]
     Route: 048

REACTIONS (1)
  - DEPRESSION [None]
